FAERS Safety Report 21933419 (Version 1)
Quarter: 2023Q1

REPORT INFORMATION
  Report Type: Spontaneous
  Country: FR (occurrence: FR)
  Receive Date: 20230131
  Receipt Date: 20230131
  Transmission Date: 20230417
  Serious: Yes (Hospitalization, Other)
  Sender: FDA-Public Use
  Company Number: None

PATIENT
  Age: 73 Year
  Sex: Female

DRUGS (2)
  1. SODIUM CHLORIDE [Suspect]
     Active Substance: SODIUM CHLORIDE
     Indication: Product used for unknown indication
     Dosage: 1 {DF} (DOSAGE FORM), (PHARMACEUTICAL FORM: 1 FP)
     Route: 042
     Dates: start: 20221211, end: 20221211
  2. DEXTROSE MONOHYDRATE [Concomitant]
     Active Substance: DEXTROSE MONOHYDRATE
     Indication: Product used for unknown indication
     Dosage: 1 {DF} (DOAGE FORM) (DOSAGE TEXT: NOT ADMINISTERED) (PHARMACEUTICAL FORM: 1 FP) (MACOSOL)
     Route: 042
     Dates: start: 20221211, end: 20221211

REACTIONS (2)
  - Product selection error [Recovered/Resolved]
  - Hypernatraemia [Recovered/Resolved]

NARRATIVE: CASE EVENT DATE: 20221211
